FAERS Safety Report 13779061 (Version 4)
Quarter: 2017Q4

REPORT INFORMATION
  Report Type: Spontaneous
  Country: JP (occurrence: JP)
  Receive Date: 20170721
  Receipt Date: 20171012
  Transmission Date: 20180320
  Serious: Yes (Hospitalization, Other)
  Sender: FDA-Public Use
  Company Number: JP-PFIZER INC-2017313950

PATIENT
  Age: 66 Year
  Sex: Female

DRUGS (1)
  1. AMLODIPINE BESILATE [Suspect]
     Active Substance: AMLODIPINE BESYLATE
     Indication: SUICIDAL IDEATION
     Dosage: 600 MG, UNK

REACTIONS (6)
  - Suicide attempt [Unknown]
  - Cardiac failure [Recovering/Resolving]
  - Nausea [Unknown]
  - Malaise [Unknown]
  - Hypotension [Recovering/Resolving]
  - Intentional overdose [Recovering/Resolving]
